FAERS Safety Report 8060711-6 (Version None)
Quarter: 2012Q1

REPORT INFORMATION
  Report Type: 
  Country: None (occurrence: None)
  Receive Date: 20120120
  Receipt Date: 20120113
  Transmission Date: 20120608
  Serious: Yes (Other)
  Sender: FDA-Public Use
  Company Number: US-ROCHE-1031035

PATIENT
  Age: 67 Year
  Sex: Male

DRUGS (3)
  1. AVASTIN [Suspect]
     Indication: ADENOCARCINOMA
  2. CARBOPLATIN [Concomitant]
     Indication: ADENOCARCINOMA
     Dates: start: 20110101
  3. PEMETREXED [Concomitant]
     Indication: ADENOCARCINOMA
     Dates: start: 20110101

REACTIONS (3)
  - MALIGNANT PLEURAL EFFUSION [None]
  - PAIN [None]
  - ASPIRATION PLEURAL CAVITY [None]
